FAERS Safety Report 4548980-8 (Version None)
Quarter: 2005Q1

REPORT INFORMATION
  Report Type: 
  Country: None (occurrence: None)
  Receive Date: 20041227
  Receipt Date: 20040908
  Transmission Date: 20050727
  Serious: No
  Sender: FDA-Public Use
  Company Number: 04P-163-0272736-00

PATIENT
  Age: 69 Year
  Sex: Female
  Weight: 68.0396 kg

DRUGS (9)
  1. HUMIRA [Suspect]
     Indication: RHEUMATOID ARTHRITIS
     Dosage: 40 MG, 1 IN 2 WK, SUBCUTANEOUS
     Route: 058
     Dates: start: 20040505, end: 20040630
  2. SERTRALINE HYDROCHLORIDE [Concomitant]
  3. ATENOLOL [Concomitant]
  4. LEVOTHYROXINE SODIUM [Concomitant]
  5. DYAZIDE [Concomitant]
  6. FOLIC ACID [Concomitant]
  7. ALPRAZOLAM [Concomitant]
  8. DICLOFENAC SODIUM [Concomitant]
  9. PREDNISONE [Concomitant]

REACTIONS (2)
  - MUSCULAR WEAKNESS [None]
  - PYREXIA [None]
